FAERS Safety Report 6933723-0 (Version None)
Quarter: 2010Q3

REPORT INFORMATION
  Report Type: 
  Country: None (occurrence: None)
  Receive Date: 20100817
  Receipt Date: 20100802
  Transmission Date: 20110219
  Serious: Yes (Hospitalization)
  Sender: FDA-Public Use
  Company Number: 2010-2132

PATIENT
  Age: 41 Year
  Sex: Male

DRUGS (1)
  1. SOMATULINE DEPOT [Suspect]
     Indication: ACROMEGALY
     Dosage: 120 MG (120 MG,)

REACTIONS (3)
  - ACROMEGALY [None]
  - DISEASE PROGRESSION [None]
  - LETHARGY [None]
